FAERS Safety Report 17286074 (Version 1)
Quarter: 2020Q1

REPORT INFORMATION
  Report Type: Spontaneous
  Country: IT (occurrence: IT)
  Receive Date: 20200118
  Receipt Date: 20200118
  Transmission Date: 20200409
  Serious: Yes (Hospitalization, Other)
  Sender: FDA-Public Use
  Company Number: IT-AUROBINDO-AUR-APL-2020-002706

PATIENT
  Age: 84 Year
  Sex: Male

DRUGS (1)
  1. MEMANTINE. [Suspect]
     Active Substance: MEMANTINE
     Indication: PRODUCT USED FOR UNKNOWN INDICATION
     Dosage: 200 MILLIGRAM, TOTAL
     Route: 048
     Dates: start: 20191203, end: 20191203

REACTIONS (4)
  - Overdose [Recovering/Resolving]
  - Bradycardia [Recovering/Resolving]
  - Sopor [Recovering/Resolving]
  - Medication error [Recovering/Resolving]

NARRATIVE: CASE EVENT DATE: 20191204
